FAERS Safety Report 8356533-9 (Version None)
Quarter: 2012Q2

REPORT INFORMATION
  Report Type: 
  Country: None (occurrence: None)
  Receive Date: 20120514
  Receipt Date: 20120507
  Transmission Date: 20120825
  Serious: Yes (Hospitalization)
  Sender: FDA-Public Use
  Company Number: PHHO2012FR005580

PATIENT
  Sex: Male
  Weight: 188 kg

DRUGS (5)
  1. NEORAL [Suspect]
     Indication: RENAL TRANSPLANT
     Dosage: 300 MG, QD
     Route: 002
     Dates: start: 20120214, end: 20120415
  2. CELLCEPT [Suspect]
     Indication: RENAL TRANSPLANT
     Dosage: 1 G, QD
     Route: 002
     Dates: start: 20120401, end: 20120401
  3. VALGANCICLOVIR [Suspect]
  4. CELLCEPT [Suspect]
     Dosage: 2 G, QD
     Route: 002
  5. PREDNISOLONE [Concomitant]
     Indication: RENAL TRANSPLANT
     Dosage: 10 MG, QD
     Route: 002
     Dates: start: 20120221, end: 20120415

REACTIONS (2)
  - FEBRILE NEUTROPENIA [None]
  - TOXICITY TO VARIOUS AGENTS [None]
